FAERS Safety Report 9704807 (Version 1)
Quarter: 2013Q4

REPORT INFORMATION
  Report Type: Spontaneous
  Country: US (occurrence: US)
  Receive Date: 20131122
  Receipt Date: 20131122
  Transmission Date: 20140711
  Serious: Yes (Death)
  Sender: FDA-Public Use
  Company Number: US-SA-2013SA118127

PATIENT
  Age: 78 Year
  Sex: Male

DRUGS (1)
  1. RENVELA [Suspect]
     Indication: PRODUCT USED FOR UNKNOWN INDICATION
     Dosage: 80 MG, 10 TABLETS PER DAY
     Route: 048
     Dates: end: 20131110

REACTIONS (1)
  - Death [Fatal]
